FAERS Safety Report 19626813 (Version 1)
Quarter: 2021Q3

REPORT INFORMATION
  Report Type: Other
  Country: US (occurrence: US)
  Receive Date: 20210729
  Receipt Date: 20210729
  Transmission Date: 20211014
  Serious: No
  Sender: FDA-Public Use
  Company Number: US-NEUROCRINE BIOSCIENCES INC.-2021NBI03933

PATIENT

DRUGS (2)
  1. INGREZZA [Suspect]
     Active Substance: VALBENAZINE
     Dosage: 80 MILLIGRAM, QD
     Route: 048
     Dates: start: 20210126, end: 20210309
  2. INGREZZA [Suspect]
     Active Substance: VALBENAZINE
     Indication: CHOREA
     Dosage: 40 MILLIGRAM, QD
     Route: 048
     Dates: start: 20210118

REACTIONS (6)
  - Feeling abnormal [Unknown]
  - Mood swings [Unknown]
  - Decreased appetite [Unknown]
  - Fatigue [Unknown]
  - Migraine [Unknown]
  - Off label use [Unknown]

NARRATIVE: CASE EVENT DATE: 2021
